FAERS Safety Report 24171434 (Version 3)
Quarter: 2024Q3

REPORT INFORMATION
  Report Type: Spontaneous
  Country: US (occurrence: US)
  Receive Date: 20240805
  Receipt Date: 20240905
  Transmission Date: 20241016
  Serious: Yes (Other)
  Sender: JOHNSON AND JOHNSON
  Company Number: US-JNJFOC-20240769506

PATIENT
  Age: 75 Year
  Sex: Male
  Weight: 83.5 kg

DRUGS (1)
  1. CARVYKTI [Suspect]
     Active Substance: CILTACABTAGENE AUTOLEUCEL
     Indication: Plasma cell myeloma
     Dosage: 0.5 X 10^6 - ONCE
     Route: 065
     Dates: start: 20240123, end: 20240123

REACTIONS (8)
  - Febrile neutropenia [Recovering/Resolving]
  - Cytokine release syndrome [Recovered/Resolved]
  - Neuralgic amyotrophy [Recovered/Resolved]
  - Axonal neuropathy [Recovered/Resolved with Sequelae]
  - Metapneumovirus infection [Unknown]
  - Lymphocytosis [Recovered/Resolved]
  - Haemoglobin decreased [Recovering/Resolving]
  - Platelet count decreased [Recovering/Resolving]

NARRATIVE: CASE EVENT DATE: 20240125
